FAERS Safety Report 5110153-8 (Version None)
Quarter: 2006Q3

REPORT INFORMATION
  Report Type: 
  Country: None (occurrence: None)
  Receive Date: 20060919
  Receipt Date: 20060919
  Transmission Date: 20061208
  Serious: Yes (Hospitalization)
  Sender: FDA-Public Use
  Company Number: None

PATIENT
  Age: 29 Year
  Sex: Female

DRUGS (1)
  1. PROMETHAZINE HCL [Suspect]
     Indication: VOMITING
     Dosage: 25 MG Q 4 TO 6 HOURS PRN IV BOLUS
     Route: 040
     Dates: start: 20060906, end: 20060906

REACTIONS (3)
  - DRUG EXPOSURE DURING PREGNANCY [None]
  - DYSKINESIA [None]
  - MUSCLE TWITCHING [None]
